FAERS Safety Report 7246434-1 (Version None)
Quarter: 2011Q1

REPORT INFORMATION
  Report Type: 
  Country: None (occurrence: None)
  Receive Date: 20110126
  Receipt Date: 20110121
  Transmission Date: 20110831
  Serious: Yes (Hospitalization, Disabling)
  Sender: FDA-Public Use
  Company Number: US-AMGEN-USASP2011003915

PATIENT
  Age: 50 Year
  Sex: Male

DRUGS (1)
  1. ENBREL [Suspect]
     Indication: RHEUMATOID ARTHRITIS
     Dates: start: 19900101, end: 20101223

REACTIONS (6)
  - RHEUMATOID ARTHRITIS [None]
  - ASTHENIA [None]
  - JOINT SWELLING [None]
  - ARTHRALGIA [None]
  - JOINT DISLOCATION [None]
  - JOINT DESTRUCTION [None]
